FAERS Safety Report 9474897 (Version 3)
Quarter: 2013Q4

REPORT INFORMATION
  Report Type: Spontaneous
  Country: US (occurrence: US)
  Receive Date: 20130823
  Receipt Date: 20131216
  Transmission Date: 20140711
  Serious: Yes (Other)
  Sender: FDA-Public Use
  Company Number: US-ELI_LILLY_AND_COMPANY-US201308004420

PATIENT
  Age: 85 Year
  Sex: Female

DRUGS (4)
  1. HUMALOG LISPRO [Suspect]
     Indication: DIABETES MELLITUS
     Dosage: UNK UNK, QID
  2. HUMALOG LISPRO [Suspect]
     Dosage: UNK UNK, QID
  3. HUMALOG LISPRO [Suspect]
     Dosage: 17 U, PRN
  4. LANTUS [Concomitant]
     Dosage: UNK, BID

REACTIONS (4)
  - Corneal bleeding [Unknown]
  - Ligament sprain [Unknown]
  - Anger [Not Recovered/Not Resolved]
  - Gait disturbance [Not Recovered/Not Resolved]
